APPROVED DRUG PRODUCT: METHAZOLAMIDE
Active Ingredient: METHAZOLAMIDE
Strength: 25MG
Dosage Form/Route: TABLET;ORAL
Application: A207438 | Product #001 | TE Code: AB
Applicant: BAUSCH AND LOMB INC
Approved: Oct 5, 2018 | RLD: No | RS: No | Type: RX